FAERS Safety Report 8362998-9 (Version None)
Quarter: 2012Q2

REPORT INFORMATION
  Report Type: 
  Country: None (occurrence: None)
  Receive Date: 20120514
  Receipt Date: 20120510
  Transmission Date: 20120825
  Serious: Yes (Hospitalization, Other)
  Sender: FDA-Public Use
  Company Number: ADR-2012-00469

PATIENT
  Sex: Female

DRUGS (3)
  1. CLONIDINE INTRATHECAL [Concomitant]
  2. BACLOFEN [Suspect]
     Indication: PAIN
  3. MORPHINE [Concomitant]

REACTIONS (5)
  - INFECTION [None]
  - OSTEOMYELITIS [None]
  - INADEQUATE ANALGESIA [None]
  - SUTURE RELATED COMPLICATION [None]
  - ALLERGY TO METALS [None]
